FAERS Safety Report 23110758 (Version 1)
Quarter: 2023Q4

REPORT INFORMATION
  Report Type: Report from Study
  Country: KR (occurrence: KR)
  Receive Date: 20231026
  Receipt Date: 20231026
  Transmission Date: 20240110
  Serious: Yes (Death, Hospitalization, Other)
  Sender: FDA-Public Use
  Company Number: KR-JAZZ-2021-KR-001416

PATIENT
  Age: 65 Year
  Sex: Male

DRUGS (2)
  1. DEFITELIO [Suspect]
     Active Substance: DEFIBROTIDE SODIUM
     Indication: Venoocclusive disease
     Dosage: 380 MILLIGRAM, QID
     Route: 042
     Dates: start: 20201127, end: 20201211
  2. DEFITELIO [Suspect]
     Active Substance: DEFIBROTIDE SODIUM
     Dosage: 190 MILLIGRAM, QID
     Route: 042
     Dates: start: 20201212

REACTIONS (2)
  - Pneumonia [Fatal]
  - Haematoma [Unknown]

NARRATIVE: CASE EVENT DATE: 20201203
